FAERS Safety Report 5202104-2 (Version None)
Quarter: 2007Q1

REPORT INFORMATION
  Report Type: 
  Country: None (occurrence: None)
  Receive Date: 20070109
  Receipt Date: 20070102
  Transmission Date: 20070707
  Serious: Yes (Life-Threatening, Hospitalization)
  Sender: FDA-Public Use
  Company Number: BR-AVENTIS-200614087EU

PATIENT
  Sex: Female
  Weight: 72 kg

DRUGS (2)
  1. LASIX [Suspect]
     Indication: SELF-MEDICATION
     Dosage: DOSE: 2 TABLETS AT NIGHT
     Route: 048
     Dates: start: 20060720, end: 20060720
  2. LASIX [Suspect]
     Indication: SWELLING
     Dosage: DOSE: 2 TABLETS AT NIGHT
     Route: 048
     Dates: start: 20060720, end: 20060720

REACTIONS (8)
  - ASCITES [None]
  - BLOOD URINE PRESENT [None]
  - DEHYDRATION [None]
  - DRUG INEFFECTIVE [None]
  - EXPIRED DRUG ADMINISTERED [None]
  - PETECHIAE [None]
  - PLEURAL EFFUSION [None]
  - RENAL COLIC [None]
